FAERS Safety Report 14891892 (Version 1)
Quarter: 2018Q2

REPORT INFORMATION
  Report Type: Spontaneous
  Country: US (occurrence: US)
  Receive Date: 20180514
  Receipt Date: 20180514
  Transmission Date: 20180711
  Serious: Yes (Other)
  Sender: FDA-Public Use
  Company Number: US-BAYER-2018-085616

PATIENT
  Age: 70 Year
  Sex: Female
  Weight: 84.99 kg

DRUGS (2)
  1. ALEVE [Suspect]
     Active Substance: NAPROXEN SODIUM
     Indication: PAIN
     Dosage: UNK
     Route: 065
     Dates: end: 20180502
  2. LINZESS [Concomitant]
     Active Substance: LINACLOTIDE
     Dosage: UNK

REACTIONS (4)
  - Weight decreased [Unknown]
  - Small intestinal obstruction [Unknown]
  - Gastric ulcer [Unknown]
  - Product use issue [None]

NARRATIVE: CASE EVENT DATE: 20180502
